FAERS Safety Report 16540862 (Version 1)
Quarter: 2019Q3

REPORT INFORMATION
  Report Type: Spontaneous
  Country: US (occurrence: US)
  Receive Date: 20190707
  Receipt Date: 20190707
  Transmission Date: 20191004
  Serious: No
  Sender: FDA-Public Use
  Company Number: None

PATIENT
  Age: 67 Year
  Sex: Female
  Weight: 62.1 kg

DRUGS (5)
  1. LEVETIRACETAM. [Concomitant]
     Active Substance: LEVETIRACETAM
  2. OMEPRAZOLE. [Suspect]
     Active Substance: OMEPRAZOLE
     Indication: GASTROOESOPHAGEAL REFLUX DISEASE
     Dosage: ?          QUANTITY:1 CAPSULE(S);?
     Route: 048
     Dates: start: 20190408, end: 20190530
  3. RABEPRAZOLE [Concomitant]
     Active Substance: RABEPRAZOLE
  4. ARTERIOZYME [Concomitant]
  5. FLECAINIDE [Concomitant]
     Active Substance: FLECAINIDE

REACTIONS (4)
  - Hypoaesthesia [None]
  - Toothache [None]
  - Pain in jaw [None]
  - Paraesthesia [None]

NARRATIVE: CASE EVENT DATE: 20190410
